FAERS Safety Report 12306656 (Version 1)
Quarter: 2016Q2

REPORT INFORMATION
  Report Type: Spontaneous
  Country: US (occurrence: US)
  Receive Date: 20160426
  Receipt Date: 20160426
  Transmission Date: 20160815
  Serious: Yes (Hospitalization, Other)
  Sender: FDA-Public Use
  Company Number: US-LHC-2016064

PATIENT
  Age: 16 Year
  Sex: Female

DRUGS (1)
  1. NITROUS OXIDE (GENERIC) [Suspect]
     Active Substance: NITROUS OXIDE
     Indication: PROCEDURAL ANXIETY

REACTIONS (1)
  - Serotonin syndrome [Recovered/Resolved]
